FAERS Safety Report 25549535 (Version 2)
Quarter: 2025Q4

REPORT INFORMATION
  Report Type: Report from Study
  Country: US (occurrence: US)
  Receive Date: 20250714
  Receipt Date: 20251113
  Transmission Date: 20260117
  Serious: Yes (Other)
  Sender: TRAVERE THERAPEUTICS
  Company Number: US-TRAVERE-2025TVT01106

PATIENT
  Age: 41 Year
  Sex: Female
  Weight: 80.739 kg

DRUGS (6)
  1. FILSPARI [Suspect]
     Active Substance: SPARSENTAN
     Indication: IgA nephropathy
     Route: 048
     Dates: start: 20250501, end: 20250515
  2. FILSPARI [Suspect]
     Active Substance: SPARSENTAN
     Route: 048
  3. LEVOTHYROXINE [Concomitant]
     Active Substance: LEVOTHYROXINE
  4. TARPEYO [Concomitant]
     Active Substance: BUDESONIDE
  5. ZEPBOUND [Concomitant]
     Active Substance: TIRZEPATIDE
  6. TELMISARTAN [Concomitant]
     Active Substance: TELMISARTAN

REACTIONS (21)
  - Acute kidney injury [Unknown]
  - Blood urea increased [Unknown]
  - Blood creatinine increased [None]
  - White blood cells urine abnormal [None]
  - Cystatin C increased [Recovering/Resolving]
  - Glomerular filtration rate decreased [None]
  - Aspartate aminotransferase decreased [Unknown]
  - Red blood cell count decreased [Recovering/Resolving]
  - Haemoglobin decreased [None]
  - Haematocrit decreased [Recovering/Resolving]
  - Urine albumin/creatinine ratio increased [Unknown]
  - Malaise [Unknown]
  - Pyrexia [Unknown]
  - Pain [Unknown]
  - Oropharyngeal pain [Unknown]
  - Chromaturia [Unknown]
  - Blood urine present [Unknown]
  - Alanine aminotransferase decreased [None]
  - Urinary occult blood positive [None]
  - Mean cell haemoglobin concentration decreased [Unknown]
  - Red blood cells urine positive [Unknown]

NARRATIVE: CASE EVENT DATE: 20250528
